FAERS Safety Report 12874602 (Version 1)
Quarter: 2016Q4

REPORT INFORMATION
  Report Type: Spontaneous
  Country: DE (occurrence: DE)
  Receive Date: 20161021
  Receipt Date: 20161021
  Transmission Date: 20170207
  Serious: Yes (Hospitalization)
  Sender: FDA-Public Use
  Company Number: DE-ALLERGAN-1673223US

PATIENT
  Age: 42 Year
  Sex: Female

DRUGS (1)
  1. ULIPRISTAL ACETATE - BP [Suspect]
     Active Substance: ULIPRISTAL ACETATE
     Indication: LEIOMYOMA
     Route: 048

REACTIONS (2)
  - Off label use [Unknown]
  - Liver disorder [Unknown]
